FAERS Safety Report 6832716-1 (Version None)
Quarter: 2010Q3

REPORT INFORMATION
  Report Type: 
  Country: None (occurrence: None)
  Receive Date: 20100712
  Receipt Date: 20100621
  Transmission Date: 20110219
  Serious: Yes (Death, Hospitalization, Other)
  Sender: FDA-Public Use
  Company Number: JP-SANOFI-AVENTIS-2010SA030831

PATIENT
  Age: 80 Year
  Sex: Male
  Weight: 47 kg

DRUGS (5)
  1. PLAVIX [Suspect]
     Indication: TRANSIENT ISCHAEMIC ATTACK
     Route: 048
     Dates: start: 20061215, end: 20071125
  2. PLAVIX [Suspect]
     Indication: BASILAR ARTERY STENOSIS
     Route: 048
     Dates: start: 20061215, end: 20071125
  3. PLETAL [Concomitant]
     Indication: TRANSIENT ISCHAEMIC ATTACK
     Route: 048
     Dates: start: 20061212, end: 20071125
  4. PLETAL [Concomitant]
     Indication: BASILAR ARTERY STENOSIS
     Route: 048
     Dates: start: 20061212, end: 20071125
  5. DEPAKENE [Concomitant]
     Route: 048
     Dates: start: 20061212, end: 20071125

REACTIONS (3)
  - HAEMOGLOBIN DECREASED [None]
  - PNEUMONIA ASPIRATION [None]
  - RED BLOOD CELL COUNT DECREASED [None]
